FAERS Safety Report 22952489 (Version 2)
Quarter: 2023Q4

REPORT INFORMATION
  Report Type: Spontaneous
  Country: US (occurrence: US)
  Receive Date: 20230918
  Receipt Date: 20231017
  Transmission Date: 20240109
  Serious: No
  Sender: FDA-Public Use
  Company Number: US-SA-SAC20230915000392

PATIENT
  Age: 55 Year
  Sex: Female
  Weight: 59 kg

DRUGS (3)
  1. DUPIXENT [Suspect]
     Active Substance: DUPILUMAB
     Indication: Dermatitis atopic
     Dosage: 300 MG, QOW
     Route: 058
  2. POMALYST [Suspect]
     Active Substance: POMALIDOMIDE
     Dosage: UNK
     Dates: end: 202308
  3. GRANIX [Concomitant]
     Active Substance: TBO-FILGRASTIM

REACTIONS (3)
  - Urinary tract infection [Recovered/Resolved]
  - Malaise [Recovered/Resolved]
  - COVID-19 [Recovering/Resolving]

NARRATIVE: CASE EVENT DATE: 20230828
